FAERS Safety Report 7062415-5 (Version None)
Quarter: 2010Q4

REPORT INFORMATION
  Report Type: 
  Country: None (occurrence: None)
  Receive Date: 20101026
  Receipt Date: 20091021
  Transmission Date: 20110411
  Serious: No
  Sender: FDA-Public Use
  Company Number: US-PFIZER INC-2009288593

PATIENT
  Sex: Female
  Weight: 52.6 kg

DRUGS (7)
  1. LIPITOR [Suspect]
     Indication: BLOOD CHOLESTEROL INCREASED
     Dosage: 10 MG, 1X/DAY
     Dates: start: 20090701
  2. NORVASC [Concomitant]
  3. FEMARA [Concomitant]
  4. FLONASE [Concomitant]
  5. ASTELIN [Concomitant]
  6. LUMIGAN [Concomitant]
  7. MONTELUKAST [Concomitant]

REACTIONS (1)
  - WEIGHT DECREASED [None]
